FAERS Safety Report 8060957-7 (Version None)
Quarter: 2012Q1

REPORT INFORMATION
  Report Type: 
  Country: None (occurrence: None)
  Receive Date: 20120120
  Receipt Date: 20120117
  Transmission Date: 20120608
  Serious: Yes (Hospitalization)
  Sender: FDA-Public Use
  Company Number: PHHO2011US15481

PATIENT
  Sex: Female
  Weight: 54.1 kg

DRUGS (8)
  1. LASIX [Concomitant]
  2. CERTICAN [Suspect]
     Dosage: 1.5 MG, BID
     Route: 048
     Dates: start: 20110203, end: 20110909
  3. PREDNISONE TAB [Suspect]
     Indication: RENAL TRANSPLANT
     Dosage: 2.5 MG, QD
     Route: 048
     Dates: start: 20110128
  4. PROGRAF [Suspect]
     Indication: RENAL TRANSPLANT
     Dosage: 01 MG, BID
     Route: 048
     Dates: start: 20110128
  5. VALCYTE [Suspect]
     Indication: CYTOMEGALOVIRUS VIRAEMIA
     Dosage: 450 MG, BID
     Route: 048
     Dates: start: 20110825
  6. CERTICAN [Suspect]
     Indication: RENAL TRANSPLANT
     Dosage: 0.75 MG, BID
     Route: 048
     Dates: start: 20110128, end: 20110202
  7. LEFLUNOMIDE [Suspect]
  8. CERTICAN [Suspect]
     Dosage: 0.75 MG, BID
     Route: 048
     Dates: start: 20110910, end: 20120116

REACTIONS (5)
  - CYTOMEGALOVIRUS VIRAEMIA [None]
  - DIARRHOEA [None]
  - PYREXIA [None]
  - HYPOTENSION [None]
  - THROMBOCYTOPENIA [None]
